FAERS Safety Report 16583417 (Version 1)
Quarter: 2019Q3

REPORT INFORMATION
  Report Type: Spontaneous
  Country: FR (occurrence: FR)
  Receive Date: 20190717
  Receipt Date: 20190717
  Transmission Date: 20191004
  Serious: Yes (Hospitalization)
  Sender: FDA-Public Use
  Company Number: FR-TEVA-2019-FR-1078332

PATIENT
  Age: 85 Year
  Sex: Male

DRUGS (14)
  1. MOVICOL [Concomitant]
     Active Substance: POLYETHYLENE GLYCOL 3350\POTASSIUM CHLORIDE\SODIUM BICARBONATE\SODIUM CHLORIDE
  2. LANSOPRAZOLE. [Concomitant]
     Active Substance: LANSOPRAZOLE
  3. SERESTA [Suspect]
     Active Substance: OXAZEPAM
     Indication: PRESCRIPTION DRUG USED WITHOUT A PRESCRIPTION
     Dosage: 50 MG - SINGLE INTAKE
     Route: 048
     Dates: start: 20190620, end: 20190620
  4. OLANZAPINE. [Suspect]
     Active Substance: OLANZAPINE
     Indication: PRESCRIPTION DRUG USED WITHOUT A PRESCRIPTION
     Dosage: 20 DROPS - SINGLE TAKE
     Route: 048
     Dates: start: 20190620, end: 20190620
  5. PARACETAMOL [Concomitant]
     Active Substance: ACETAMINOPHEN
  6. SIMVASTATINE [Suspect]
     Active Substance: SIMVASTATIN
     Indication: PRESCRIPTION DRUG USED WITHOUT A PRESCRIPTION
     Dosage: 10 MG - SINGLE INTAKE
     Route: 048
     Dates: start: 20190620, end: 20190620
  7. MIANSERINE (CHLORHYDRATE DE) [Concomitant]
     Active Substance: MIANSERIN HYDROCHLORIDE
  8. LOXAPAC [Suspect]
     Active Substance: LOXAPINE
     Indication: PRESCRIPTION DRUG USED WITHOUT A PRESCRIPTION
     Dosage: 30 DROPS - SINGLE TAKE
     Route: 048
     Dates: start: 20190620, end: 20190620
  9. SODIUM (VALPROATE DE) [Suspect]
     Active Substance: VALPROATE SODIUM
     Indication: PRESCRIPTION DRUG USED WITHOUT A PRESCRIPTION
     Dosage: 750 MG- SINGLE TAKE
     Route: 048
     Dates: start: 20190620, end: 20190620
  10. KARDEGIC [Concomitant]
     Active Substance: ASPIRIN DL-LYSINE
  11. TRAMADOL (CHLORHYDRATE DE) [Concomitant]
     Active Substance: TRAMADOL HYDROCHLORIDE
  12. AMIODARONE (CHLORHYDRATE D^) [Concomitant]
     Active Substance: AMIODARONE HYDROCHLORIDE
  13. TAMSULOSINE [Concomitant]
     Active Substance: TAMSULOSIN HYDROCHLORIDE
  14. RISPERIDONE. [Concomitant]
     Active Substance: RISPERIDONE

REACTIONS (2)
  - Somnolence [Recovered/Resolved]
  - Wrong patient received product [Recovered/Resolved]

NARRATIVE: CASE EVENT DATE: 20190620
